FAERS Safety Report 10184714 (Version 3)
Quarter: 2014Q3

REPORT INFORMATION
  Report Type: Report from Study
  Country: GB (occurrence: GB)
  Receive Date: 20140521
  Receipt Date: 20140731
  Transmission Date: 20150326
  Serious: Yes (Life-Threatening, Hospitalization)
  Sender: FDA-Public Use
  Company Number: GB-ROCHE-1102459

PATIENT
  Age: 58 Year
  Sex: Female
  Weight: 116.55 kg

DRUGS (21)
  1. CALCIUM GLUCONATE. [Concomitant]
     Active Substance: CALCIUM GLUCONATE
     Indication: CALCIUM DEFICIENCY
     Route: 065
     Dates: start: 20130715, end: 20130715
  2. CHLORHEXIDINE [Concomitant]
     Active Substance: CHLORHEXIDINE
     Indication: MUCOSAL INFLAMMATION
     Route: 065
     Dates: start: 20130716
  3. TRIMETHOPRIM. [Concomitant]
     Active Substance: TRIMETHOPRIM
     Indication: PROPHYLAXIS
     Route: 065
     Dates: start: 20140402, end: 20140407
  4. SIMVASTATIN. [Concomitant]
     Active Substance: SIMVASTATIN
     Indication: BLOOD CHOLESTEROL INCREASED
     Route: 065
     Dates: start: 201008
  5. ENOXAPARIN [Concomitant]
     Active Substance: ENOXAPARIN
     Route: 065
     Dates: start: 20120917, end: 20120919
  6. ACICLOVIR [Concomitant]
     Active Substance: ACYCLOVIR
     Route: 065
     Dates: start: 20130716, end: 20130724
  7. RITUXIMAB [Suspect]
     Active Substance: RITUXIMAB
     Indication: NON-HODGKIN^S LYMPHOMA
     Dosage: DATE OF LAST DOSE PRIOR TO SAE: 04/FEB/2014
     Route: 058
     Dates: start: 20120814
  8. MORPHINE [Concomitant]
     Active Substance: MORPHINE
     Indication: NEPHROSTOMY
     Route: 065
     Dates: start: 20120719, end: 20120719
  9. STEMETIL [Concomitant]
     Active Substance: PROCHLORPERAZINE MALEATE
     Indication: NEPHROSTOMY
     Route: 065
     Dates: start: 20120719, end: 20120719
  10. ACICLOVIR [Concomitant]
     Active Substance: ACYCLOVIR
     Indication: ANTIVIRAL PROPHYLAXIS
     Route: 065
     Dates: start: 20120917, end: 20120920
  11. DIFFLAM [Concomitant]
     Active Substance: BENZYDAMINE HYDROCHLORIDE
     Indication: MOUTH ULCERATION
     Route: 065
     Dates: start: 20130716, end: 20130819
  12. RITUXIMAB [Suspect]
     Active Substance: RITUXIMAB
     Indication: NON-HODGKIN^S LYMPHOMA
     Route: 042
     Dates: start: 20120814
  13. LABETALOL [Concomitant]
     Active Substance: LABETALOL\LABETALOL HYDROCHLORIDE
     Indication: HYPERTENSION
     Route: 065
     Dates: start: 201106
  14. VITAMIN K [Concomitant]
     Active Substance: PHYTONADIONE
     Indication: BIOPSY BONE MARROW
     Route: 065
     Dates: start: 20120730, end: 20120730
  15. MIRTAZAPINE. [Concomitant]
     Active Substance: MIRTAZAPINE
     Indication: DEPRESSION
     Route: 065
     Dates: start: 201108
  16. FRESH FROZEN PLASMA [Concomitant]
     Active Substance: HUMAN PLASMA
     Indication: BIOPSY BONE MARROW
     Route: 065
     Dates: start: 20120730, end: 20120730
  17. HYDROCORTISONE. [Concomitant]
     Active Substance: HYDROCORTISONE
     Route: 065
     Dates: start: 20120814
  18. SALBUTAMOL [Concomitant]
     Active Substance: ALBUTEROL
     Indication: DYSPNOEA
     Route: 065
     Dates: start: 20120319
  19. WARFARIN [Concomitant]
     Active Substance: WARFARIN
     Indication: ATRIAL FIBRILLATION
     Route: 065
     Dates: start: 201008
  20. RAMIPRIL. [Concomitant]
     Active Substance: RAMIPRIL
     Indication: HYPERTENSION
     Route: 065
     Dates: start: 201008
  21. CHLORPHENAMINE [Concomitant]
     Active Substance: CHLORPHENIRAMINE MALEATE
     Route: 065
     Dates: start: 20120814

REACTIONS (3)
  - Sepsis [Recovered/Resolved]
  - Escherichia urinary tract infection [Recovered/Resolved]
  - Urinary tract infection [Recovered/Resolved]

NARRATIVE: CASE EVENT DATE: 20120814
